FAERS Safety Report 16561139 (Version 2)
Quarter: 2019Q3

REPORT INFORMATION
  Report Type: Report from Study
  Country: BE (occurrence: BE)
  Receive Date: 20190711
  Receipt Date: 20190723
  Transmission Date: 20191004
  Serious: Yes (Hospitalization, Other)
  Sender: FDA-Public Use
  Company Number: BE-MYLANLABS-2019M1063429

PATIENT
  Age: 69 Year
  Sex: Female
  Weight: 58.6 kg

DRUGS (20)
  1. OXALIPLATIN. [Suspect]
     Active Substance: OXALIPLATIN
     Dosage: 140.25 MG, QOW
     Route: 042
     Dates: start: 20181228, end: 20181228
  2. FOLIC ACID. [Suspect]
     Active Substance: FOLIC ACID
     Dosage: 660 MG, QOW
     Route: 042
     Dates: start: 20181228, end: 20181228
  3. FLUOROURACIL. [Suspect]
     Active Substance: FLUOROURACIL
     Dosage: UNK UNK, QOW
     Route: 042
     Dates: start: 20181230, end: 20181230
  4. TRAUMEEL S [Concomitant]
     Active Substance: HOMEOPATHICS
     Indication: ABDOMINAL PAIN UPPER
     Dosage: UNK
     Dates: start: 20181212
  5. FOLIC ACID. [Suspect]
     Active Substance: FOLIC ACID
     Indication: PANCREATIC CARCINOMA METASTATIC
     Dosage: 660 MG, QOW
     Route: 042
     Dates: start: 20181130, end: 20181130
  6. DAFALGAN CODEINE [Concomitant]
     Active Substance: ACETAMINOPHEN\CODEINE PHOSPHATE
     Dosage: UNK
     Dates: start: 20181129
  7. FLUOROURACIL. [Suspect]
     Active Substance: FLUOROURACIL
     Dosage: 3960 MILLIGRAM, CYCLE
     Route: 042
     Dates: start: 20181202, end: 20181202
  8. LIVIAL [Concomitant]
     Active Substance: TIBOLONE
     Indication: HORMONE LEVEL ABNORMAL
     Dosage: UNK
  9. FORLAX [Concomitant]
     Active Substance: POLYETHYLENE GLYCOL 4000
     Indication: CONSTIPATION
     Dosage: UNK
     Dates: start: 20181129
  10. OXALIPLATIN. [Suspect]
     Active Substance: OXALIPLATIN
     Indication: PANCREATIC CARCINOMA METASTATIC
     Dosage: 140.25 MG, QCY
     Route: 042
     Dates: start: 20181130
  11. CRESTOR [Concomitant]
     Active Substance: ROSUVASTATIN CALCIUM
     Indication: HYPERCHOLESTEROLAEMIA
     Dosage: UNK
  12. ZOLPIDEM [Concomitant]
     Active Substance: ZOLPIDEM TARTRATE
     Indication: INSOMNIA
     Dosage: UNK
  13. FLUOROURACIL. [Suspect]
     Active Substance: FLUOROURACIL
     Dosage: 3960 MG, QOW
     Route: 042
     Dates: start: 20181130, end: 20181130
  14. DAFALGAN [Concomitant]
     Active Substance: ACETAMINOPHEN
     Dosage: UNK
     Dates: start: 20181114
  15. OXALIPLATIN. [Suspect]
     Active Substance: OXALIPLATIN
     Dosage: 0.2 MILLIGRAM
     Route: 058
     Dates: start: 20181130
  16. OXALIPLATIN. [Suspect]
     Active Substance: OXALIPLATIN
     Dosage: 140.25 MILLIGRAM, QOW
     Route: 042
     Dates: start: 20181130, end: 20181130
  17. FLUOROURACIL. [Suspect]
     Active Substance: FLUOROURACIL
     Indication: PANCREATIC CARCINOMA METASTATIC
     Dosage: 660 MG, QOW
     Route: 040
     Dates: start: 20181130, end: 20181130
  18. FLUOROURACIL. [Suspect]
     Active Substance: FLUOROURACIL
     Dosage: 660 MILLIGRAM, BIWEEKLY
     Route: 040
     Dates: start: 20181202, end: 20181202
  19. FLUOROURACIL. [Suspect]
     Active Substance: FLUOROURACIL
     Dosage: UNK UNK, QCY
     Route: 042
     Dates: start: 20190105, end: 20190105
  20. LOORTAN [Concomitant]
     Active Substance: LOSARTAN POTASSIUM
     Indication: HYPERTENSION
     Dosage: UNK

REACTIONS (2)
  - Hemiplegia [Not Recovered/Not Resolved]
  - Embolic stroke [Not Recovered/Not Resolved]

NARRATIVE: CASE EVENT DATE: 20190106
